FAERS Safety Report 6469359-8 (Version None)
Quarter: 2009Q4

REPORT INFORMATION
  Report Type: 
  Country: None (occurrence: None)
  Receive Date: 20091203
  Receipt Date: 20071011
  Transmission Date: 20100525
  Serious: Yes (Other)
  Sender: FDA-Public Use
  Company Number: US-ELI_LILLY_AND_COMPANY-US200710000652

PATIENT
  Sex: Female
  Weight: 63.945 kg

DRUGS (3)
  1. FORTEO [Suspect]
     Indication: OSTEOPOROSIS
     Dosage: 20 UG, DAILY (1/D)
     Dates: start: 20070927, end: 20070930
  2. AVAPRO [Concomitant]
  3. ATENOLOL [Concomitant]

REACTIONS (5)
  - BLOOD PRESSURE DECREASED [None]
  - COLD SWEAT [None]
  - HEART RATE DECREASED [None]
  - HYPERHIDROSIS [None]
  - LOSS OF CONSCIOUSNESS [None]
